FAERS Safety Report 6138279-0 (Version None)
Quarter: 2009Q1

REPORT INFORMATION
  Report Type: 
  Country: None (occurrence: None)
  Receive Date: 20090327
  Receipt Date: 20090318
  Transmission Date: 20090719
  Serious: Yes (Other)
  Sender: FDA-Public Use
  Company Number: 2009-00868

PATIENT
  Age: 72 Year
  Sex: Male
  Weight: 102.9 kg

DRUGS (10)
  1. VELCADE [Suspect]
     Indication: MULTIPLE MYELOMA
     Dosage: 3 MG, IV BOLUS
     Route: 040
     Dates: start: 20090220, end: 20090302
  2. MELPHALAN(MELPHALAN) [Suspect]
     Indication: MULTIPLE MYELOMA
     Dosage: 15 MG, ORAL
     Route: 048
     Dates: start: 20090220
  3. PREDNISONE TAB [Suspect]
     Indication: MULTIPLE MYELOMA
     Dosage: 150 MG, ORAL
     Route: 048
     Dates: start: 20090220
  4. LISINOPRIL [Concomitant]
  5. METOPROLOL TARTRATE [Concomitant]
  6. HYDROCHLOROTHIAZIDE [Concomitant]
  7. SULAR [Concomitant]
  8. KLONODINE [Concomitant]
  9. PROTONIX [Concomitant]
  10. VENOFER [Concomitant]

REACTIONS (2)
  - ABASIA [None]
  - ORCHITIS [None]
